FAERS Safety Report 23288313 (Version 1)
Quarter: 2023Q4

REPORT INFORMATION
  Report Type: Spontaneous
  Country: US (occurrence: US)
  Receive Date: 20231212
  Receipt Date: 20231212
  Transmission Date: 20240110
  Serious: No
  Sender: FDA-Public Use
  Company Number: US-FERRINGPH-2023FE00437

PATIENT
  Age: 36 Year
  Sex: Female
  Weight: 72.562 kg

DRUGS (8)
  1. MENOPUR [Suspect]
     Active Substance: FOLLITROPIN\LUTEINIZING HORMONE
     Indication: Assisted reproductive technology
     Dosage: 75 UNK
     Route: 065
     Dates: start: 20230111
  2. MENOPUR [Suspect]
     Active Substance: FOLLITROPIN\LUTEINIZING HORMONE
     Dosage: 75 UNK
     Route: 065
     Dates: start: 20230108
  3. MENOPUR [Suspect]
     Active Substance: FOLLITROPIN\LUTEINIZING HORMONE
     Dosage: 225 UNK
     Route: 065
     Dates: start: 2023
  4. MENOPUR [Suspect]
     Active Substance: FOLLITROPIN\LUTEINIZING HORMONE
     Dosage: UNK
     Route: 065
     Dates: start: 2022
  5. GONAL-F [Suspect]
     Active Substance: FOLLITROPIN
     Indication: Product used for unknown indication
     Dosage: 300 UNK
     Route: 065
     Dates: start: 20230111
  6. GONAL-F [Suspect]
     Active Substance: FOLLITROPIN
     Dosage: 150 UNK
     Route: 065
     Dates: start: 20230108
  7. GONAL-F [Suspect]
     Active Substance: FOLLITROPIN
     Dosage: UNK
     Route: 065
     Dates: start: 2023
  8. GONAL-F [Suspect]
     Active Substance: FOLLITROPIN
     Dosage: UNK
     Route: 065
     Dates: start: 2022

REACTIONS (1)
  - Drug ineffective [Unknown]

NARRATIVE: CASE EVENT DATE: 20230101
